FAERS Safety Report 10589193 (Version 1)
Quarter: 2014Q4

REPORT INFORMATION
  Report Type: Report from Study
  Country: IN (occurrence: IN)
  Receive Date: 20141118
  Receipt Date: 20141118
  Transmission Date: 20150529
  Serious: Yes (Other)
  Sender: FDA-Public Use
  Company Number: IN-ROCHE-1491810

PATIENT
  Sex: Male

DRUGS (6)
  1. RIBAVIRIN. [Suspect]
     Active Substance: RIBAVIRIN
     Indication: CHRONIC KIDNEY DISEASE
     Route: 048
     Dates: start: 20140929, end: 20141020
  2. FOLVITE [Concomitant]
     Active Substance: FOLIC ACID
     Route: 048
     Dates: start: 20140929, end: 20141020
  3. EXXURA [Suspect]
     Active Substance: PEGINTERFERON ALFA-2A
     Indication: CHRONIC KIDNEY DISEASE
     Route: 065
     Dates: start: 20140929, end: 20141020
  4. DOLO (INDIA) [Concomitant]
     Route: 048
     Dates: start: 20140929, end: 20141020
  5. EXXURA [Suspect]
     Active Substance: PEGINTERFERON ALFA-2A
     Indication: HEPATITIS C
  6. RIBAVIRIN. [Suspect]
     Active Substance: RIBAVIRIN
     Indication: HEPATITIS C

REACTIONS (1)
  - Full blood count decreased [Not Recovered/Not Resolved]
